FAERS Safety Report 21839027 (Version 2)
Quarter: 2023Q2

REPORT INFORMATION
  Report Type: Spontaneous
  Country: US (occurrence: US)
  Receive Date: 20230109
  Receipt Date: 20230419
  Transmission Date: 20230722
  Serious: No
  Sender: FDA-Public Use
  Company Number: US-BRISTOL-MYERS SQUIBB COMPANY-2023-003327

PATIENT
  Age: 54 Year
  Sex: Male
  Weight: 88.450 kg

DRUGS (1)
  1. REVLIMID [Suspect]
     Active Substance: LENALIDOMIDE
     Indication: Plasma cell myeloma
     Dosage: FREQUENCY: DAILY X 28 DAYS
     Route: 048
     Dates: start: 20171207

REACTIONS (3)
  - Migraine [Not Recovered/Not Resolved]
  - Arthralgia [Not Recovered/Not Resolved]
  - Neuralgia [Not Recovered/Not Resolved]
